FAERS Safety Report 4558047-0 (Version None)
Quarter: 2005Q1

REPORT INFORMATION
  Report Type: 
  Country: None (occurrence: None)
  Receive Date: 20050121
  Receipt Date: 20040708
  Transmission Date: 20050727
  Serious: No
  Sender: FDA-Public Use
  Company Number: US-BRISTOL-MYERS SQUIBB COMPANY-12640298

PATIENT
  Age: 59 Year
  Sex: Male

DRUGS (18)
  1. SERZONE [Suspect]
     Indication: DEPRESSION
     Dates: start: 20010101, end: 20020401
  2. PRAVACHOL [Concomitant]
  3. PLAVIX [Concomitant]
  4. NITROSTAT [Concomitant]
  5. GLUCOPHAGE [Concomitant]
  6. FLUOCINONIDE [Concomitant]
  7. ZOLOFT [Concomitant]
  8. HYDROCORTISONE [Concomitant]
  9. CELEBREX [Concomitant]
  10. PREDNISOLONE [Concomitant]
  11. TOPROL-XL [Concomitant]
  12. WELCHOL [Concomitant]
  13. METFORMIN HCL [Concomitant]
  14. PENLAC [Concomitant]
  15. TOBRADEX [Concomitant]
  16. NEXIUM [Concomitant]
  17. GLUCOTROL XL [Concomitant]
  18. NITROSTAT [Concomitant]

REACTIONS (3)
  - ABDOMINAL PAIN [None]
  - ALANINE AMINOTRANSFERASE INCREASED [None]
  - HEPATIC STEATOSIS [None]
